FAERS Safety Report 19714031 (Version 2)
Quarter: 2021Q3

REPORT INFORMATION
  Report Type: Spontaneous
  Country: US (occurrence: US)
  Receive Date: 20210818
  Receipt Date: 20210827
  Transmission Date: 20211014
  Serious: No
  Sender: FDA-Public Use
  Company Number: US-JNJFOC-20210822877

PATIENT

DRUGS (1)
  1. ZYRTEC [Suspect]
     Active Substance: CETIRIZINE HYDROCHLORIDE
     Indication: DRUG HYPERSENSITIVITY
     Dosage: 2 IN THE MORNING AND 2 AT NIGHT AND APPROXIMATELY
     Route: 065
     Dates: start: 202106

REACTIONS (5)
  - Off label use [Unknown]
  - Myalgia [Unknown]
  - Overdose [Unknown]
  - Product use in unapproved indication [Unknown]
  - Arthralgia [Unknown]

NARRATIVE: CASE EVENT DATE: 2021
